FAERS Safety Report 8936925 (Version 1)
Quarter: 2012Q4

REPORT INFORMATION
  Report Type: 
  Country: DE (occurrence: DE)
  Receive Date: 20121130
  Receipt Date: 20121130
  Transmission Date: 20130627
  Serious: Yes (Other)
  Sender: FDA-Public Use
  Company Number: GXKR2012DE003638

PATIENT
  Age: 31 Year
  Sex: Female

DRUGS (2)
  1. AMITRIPTYLINE [Suspect]
     Indication: DEPRESSION
     Dosage: 50 mg/day
     Route: 048
  2. CELESTAN [Concomitant]
     Indication: MATERNAL THERAPY TO ENHANCE FOETAL LUNG MATURITY
     Dosage: UNK UKN, UNK
     Route: 030
     Dates: start: 20120314, end: 20120315

REACTIONS (3)
  - Oligohydramnios [Recovered/Resolved]
  - Placenta praevia [Unknown]
  - Exposure during pregnancy [Unknown]
